FAERS Safety Report 5012797-0 (Version None)
Quarter: 2006Q2

REPORT INFORMATION
  Report Type: 
  Country: None (occurrence: None)
  Receive Date: 20060530
  Receipt Date: 20060314
  Transmission Date: 20061013
  Serious: Yes (Other)
  Sender: FDA-Public Use
  Company Number: US-BRISTOL-MYERS SQUIBB COMPANY-13313705

PATIENT
  Age: 50 Year
  Sex: Female

DRUGS (4)
  1. ERBITUX [Suspect]
     Indication: COLON CANCER METASTATIC
     Dosage: RECEIVED 36 MG (18 CC).
     Route: 042
     Dates: start: 20060308, end: 20060308
  2. BENADRYL [Concomitant]
  3. SOLU-MEDROL [Concomitant]
  4. PHENERGAN HCL [Concomitant]

REACTIONS (1)
  - INFUSION RELATED REACTION [None]
